FAERS Safety Report 15068006 (Version 2)
Quarter: 2018Q3

REPORT INFORMATION
  Report Type: Report from Study
  Country: ZA (occurrence: ZA)
  Receive Date: 20180626
  Receipt Date: 20180814
  Transmission Date: 20181010
  Serious: Yes (Death, Hospitalization)
  Sender: FDA-Public Use
  Company Number: PHHY2018ZA027384

PATIENT
  Age: 81 Year
  Sex: Female

DRUGS (2)
  1. CO?DIOVAN [Suspect]
     Active Substance: HYDROCHLOROTHIAZIDE\VALSARTAN
     Indication: HYPERTENSION
     Dosage: 1 DF (HYDROCHLOROTHIAZIDE 12.5 MG AND VALSARTAN 160 MG)
     Route: 048
     Dates: start: 201712
  2. CO?DIOVAN [Suspect]
     Active Substance: HYDROCHLOROTHIAZIDE\VALSARTAN
     Dosage: (HYDROCHLOROTHIAZIDE 12.5 MG AND VALSARTAN 160 MG)
     Route: 048
     Dates: start: 201802

REACTIONS (2)
  - Dementia Alzheimer^s type [Unknown]
  - Death [Fatal]

NARRATIVE: CASE EVENT DATE: 20180807
